FAERS Safety Report 7395397-7 (Version None)
Quarter: 2011Q2

REPORT INFORMATION
  Report Type: 
  Country: None (occurrence: None)
  Receive Date: 20110405
  Receipt Date: 20110322
  Transmission Date: 20111010
  Serious: Yes (Other)
  Sender: FDA-Public Use
  Company Number: PHHY2011RS13821

PATIENT
  Age: 55 Year
  Sex: Male

DRUGS (2)
  1. TICLOPIDINE HCL [Suspect]
     Indication: MYOCARDIAL INFARCTION
     Dosage: 200 MG/DAY
     Dates: start: 20060401
  2. ASPIRIN [Suspect]
     Indication: MYOCARDIAL INFARCTION
     Dosage: UNK
     Dates: start: 20060401

REACTIONS (25)
  - VIITH NERVE PARALYSIS [None]
  - MUSCULAR WEAKNESS [None]
  - BORRELIA TEST POSITIVE [None]
  - C-REACTIVE PROTEIN INCREASED [None]
  - HYPERTENSION [None]
  - BLOOD FIBRINOGEN INCREASED [None]
  - ALANINE AMINOTRANSFERASE INCREASED [None]
  - WHITE BLOOD CELL COUNT DECREASED [None]
  - DIARRHOEA [None]
  - IMMOBILE [None]
  - BLOOD BILIRUBIN INCREASED [None]
  - BLOOD LACTATE DEHYDROGENASE INCREASED [None]
  - PROTEIN TOTAL DECREASED [None]
  - NEUROBORRELIOSIS [None]
  - PYREXIA [None]
  - PROTHROMBIN TIME PROLONGED [None]
  - BLOOD ALBUMIN DECREASED [None]
  - HAEMOGLOBIN DECREASED [None]
  - ACTIVATED PARTIAL THROMBOPLASTIN TIME PROLONGED [None]
  - BLOOD ALKALINE PHOSPHATASE INCREASED [None]
  - GAMMA-GLUTAMYLTRANSFERASE INCREASED [None]
  - HEART RATE INCREASED [None]
  - POLYNEUROPATHY [None]
  - APLASTIC ANAEMIA [None]
  - RED BLOOD CELL SEDIMENTATION RATE INCREASED [None]
